FAERS Safety Report 20350499 (Version 1)
Quarter: 2022Q1

REPORT INFORMATION
  Report Type: Report from Study
  Country: AU (occurrence: AU)
  Receive Date: 20220119
  Receipt Date: 20220119
  Transmission Date: 20220424
  Serious: Yes (Other)
  Sender: FDA-Public Use
  Company Number: AU-JNJFOC-20220122274

PATIENT
  Sex: Female

DRUGS (1)
  1. SPRAVATO [Suspect]
     Active Substance: ESKETAMINE
     Indication: Product used for unknown indication

REACTIONS (5)
  - Panic attack [Recovered/Resolved]
  - Dysgeusia [Recovered/Resolved]
  - Dissociation [Recovered/Resolved]
  - Flat affect [Unknown]
  - Feeling of despair [Not Recovered/Not Resolved]
